FAERS Safety Report 6184526-9 (Version None)
Quarter: 2009Q2

REPORT INFORMATION
  Report Type: 
  Country: None (occurrence: None)
  Receive Date: 20090508
  Receipt Date: 20090428
  Transmission Date: 20091009
  Serious: Yes (Other)
  Sender: FDA-Public Use
  Company Number: US-ABBOTT-09P-163-0570183-00

PATIENT
  Age: 21 Year
  Sex: Male

DRUGS (1)
  1. FERROUS SULFATE TAB [Suspect]
     Indication: SUICIDAL IDEATION

REACTIONS (4)
  - GASTRITIS HAEMORRHAGIC [None]
  - MUCOSAL HAEMORRHAGE [None]
  - OVERDOSE [None]
  - SUICIDAL IDEATION [None]
